FAERS Safety Report 5092458-2 (Version None)
Quarter: 2006Q3

REPORT INFORMATION
  Report Type: 
  Country: None (occurrence: None)
  Receive Date: 20060825
  Receipt Date: 20060816
  Transmission Date: 20061208
  Serious: Yes (Other)
  Sender: FDA-Public Use
  Company Number: 2006100038

PATIENT
  Age: 44 Year
  Sex: Female
  Weight: 57.1532 kg

DRUGS (1)
  1. SINEQUAN [Suspect]
     Indication: DRUG USE FOR UNKNOWN INDICATION

REACTIONS (8)
  - ACCIDENTAL EXPOSURE [None]
  - DEPRESSION [None]
  - DRUG HYPERSENSITIVITY [None]
  - DYSPNOEA [None]
  - HOT FLUSH [None]
  - RASH [None]
  - RHEUMATOID FACTOR INCREASED [None]
  - URTICARIA [None]
